FAERS Safety Report 9261337 (Version 1)
Quarter: 2013Q2

REPORT INFORMATION
  Report Type: Spontaneous
  Country: FR (occurrence: FR)
  Receive Date: 20130429
  Receipt Date: 20130429
  Transmission Date: 20140414
  Serious: Yes (Hospitalization, Disabling)
  Sender: FDA-Public Use
  Company Number: FR-GLAXOSMITHKLINE-B0887222A

PATIENT
  Age: 73 Year
  Sex: 0
  Weight: 74 kg

DRUGS (9)
  1. DEROXAT [Suspect]
     Indication: PRODUCT USED FOR UNKNOWN INDICATION
     Route: 048
     Dates: start: 2011, end: 2012
  2. ANAGRELIDE [Suspect]
     Indication: THROMBOCYTOPENIA
     Dosage: .5MG PER DAY
     Route: 048
     Dates: start: 20081002, end: 201103
  3. ALLOPURINOL [Suspect]
     Indication: GOUT
     Route: 048
     Dates: start: 2010
  4. KARDEGIC [Suspect]
     Indication: PRODUCT USED FOR UNKNOWN INDICATION
     Route: 048
     Dates: start: 2010
  5. ZOLPIDEM [Suspect]
     Indication: PRODUCT USED FOR UNKNOWN INDICATION
     Route: 048
     Dates: start: 2011
  6. XANAX [Suspect]
     Indication: PRODUCT USED FOR UNKNOWN INDICATION
     Route: 048
     Dates: start: 2011
  7. STILNOX [Concomitant]
     Route: 065
  8. MIZOLLEN [Concomitant]
     Route: 065
  9. INEXIUM [Concomitant]
     Route: 065

REACTIONS (8)
  - Pulmonary arterial hypertension [Recovering/Resolving]
  - Dyspnoea exertional [Recovering/Resolving]
  - Cardiac murmur [Unknown]
  - Oedema [Recovered/Resolved]
  - N-terminal prohormone brain natriuretic peptide increased [Unknown]
  - Cardiomegaly [Unknown]
  - Cardiac failure [Unknown]
  - Emphysema [Unknown]
